FAERS Safety Report 5396701-1 (Version None)
Quarter: 2007Q3

REPORT INFORMATION
  Report Type: 
  Country: None (occurrence: None)
  Receive Date: 20070725
  Receipt Date: 20060925
  Transmission Date: 20080115
  Serious: No
  Sender: FDA-Public Use
  Company Number: US-AMGEN-KDL194590

PATIENT
  Sex: Female

DRUGS (11)
  1. EPOGEN [Suspect]
     Indication: RENAL FAILURE CHRONIC
  2. NEORAL [Concomitant]
  3. DIATX [Concomitant]
  4. MULTIVITAMIN [Concomitant]
  5. RENAGEL [Concomitant]
  6. CELLCEPT [Concomitant]
  7. ZETIA [Concomitant]
  8. ESTROGEN NOS [Concomitant]
  9. COZAAR [Concomitant]
  10. CATAPRES [Concomitant]
     Route: 062
  11. CLONIDINE [Concomitant]

REACTIONS (1)
  - RED BLOOD CELL COUNT DECREASED [None]
